FAERS Safety Report 9160486 (Version 3)
Quarter: 2013Q2

REPORT INFORMATION
  Report Type: Report from Study
  Country: DE (occurrence: DE)
  Receive Date: 20130313
  Receipt Date: 20130412
  Transmission Date: 20140414
  Serious: Yes (Death, Hospitalization)
  Sender: FDA-Public Use
  Company Number: DE-CELGENEUS-062-21660-13023245

PATIENT
  Age: 80 Year
  Sex: Female
  Weight: 89 kg

DRUGS (6)
  1. ABRAXANE [Suspect]
     Indication: BREAST CANCER
     Route: 041
     Dates: start: 20130116, end: 20130213
  2. XELODA [Suspect]
     Indication: BREAST CANCER
     Route: 048
     Dates: start: 20130116, end: 20130219
  3. ALLOPURINOL [Concomitant]
     Indication: GOUT
     Route: 065
     Dates: start: 2012
  4. EUTHYROX [Concomitant]
     Indication: THYROIDECTOMY
     Route: 065
     Dates: start: 1990
  5. LISINOPRIL [Concomitant]
     Indication: HYPERTENSION
     Route: 065
     Dates: start: 2003
  6. HYDROCHLOROTHIAZIDE [Concomitant]
     Indication: HYPERTENSION
     Route: 065
     Dates: start: 2003

REACTIONS (1)
  - Dehydration [Fatal]
